FAERS Safety Report 12157404 (Version 5)
Quarter: 2016Q3

REPORT INFORMATION
  Report Type: Report from Study
  Country: JP (occurrence: JP)
  Receive Date: 20160308
  Receipt Date: 20160909
  Transmission Date: 20161109
  Serious: Yes (Death, Other)
  Sender: FDA-Public Use
  Company Number: JP-BRISTOL-MYERS SQUIBB COMPANY-BMS-2016-017229

PATIENT
  Age: 69 Year
  Sex: Male

DRUGS (1)
  1. NIVOLUMAB [Suspect]
     Active Substance: NIVOLUMAB
     Indication: NON-SMALL CELL LUNG CANCER
     Dosage: 160 MG, QD
     Route: 041
     Dates: start: 20160208, end: 20160208

REACTIONS (3)
  - Melaena [Recovering/Resolving]
  - Malignant neoplasm progression [Fatal]
  - Colitis [Recovering/Resolving]

NARRATIVE: CASE EVENT DATE: 201602
